FAERS Safety Report 25128070 (Version 1)
Quarter: 2025Q1

REPORT INFORMATION
  Report Type: Spontaneous
  Country: GB (occurrence: GB)
  Receive Date: 20250327
  Receipt Date: 20250327
  Transmission Date: 20250408
  Serious: Yes (Other)
  Sender: Haleon PLC
  Company Number: None

PATIENT
  Age: 54 Year
  Sex: Female

DRUGS (3)
  1. ACETAMINOPHEN\IBUPROFEN [Suspect]
     Active Substance: ACETAMINOPHEN\IBUPROFEN
     Indication: Product used for unknown indication
  2. DEXAMETHASONE\NEOMYCIN SULFATE [Suspect]
     Active Substance: DEXAMETHASONE\NEOMYCIN SULFATE
     Indication: Ear pain
     Dates: start: 20250305
  3. IBUPROFEN AND PARACETAMOL [Concomitant]
     Indication: Ear pain

REACTIONS (4)
  - Vestibular migraine [Unknown]
  - Pain [Unknown]
  - Ear pain [Unknown]
  - Vision blurred [Not Recovered/Not Resolved]

NARRATIVE: CASE EVENT DATE: 20250310
